FAERS Safety Report 11511068 (Version 2)
Quarter: 2015Q3

REPORT INFORMATION
  Report Type: Spontaneous
  Country: AT (occurrence: AT)
  Receive Date: 20150915
  Receipt Date: 20150925
  Transmission Date: 20151125
  Serious: Yes (Other)
  Sender: FDA-Public Use
  Company Number: AT-009507513-1509AUS006977

PATIENT
  Sex: Male

DRUGS (2)
  1. TEMOZOLOMIDE. [Suspect]
     Active Substance: TEMOZOLOMIDE
     Indication: CHEMOTHERAPY
     Dosage: 20 MG, BID
  2. CELECOXIB. [Suspect]
     Active Substance: CELECOXIB
     Indication: CHEMOTHERAPY
     Dosage: 200 MG, QD

REACTIONS (4)
  - Thrombocytopenia [Unknown]
  - Drug ineffective [Unknown]
  - Malignant neoplasm progression [Not Recovered/Not Resolved]
  - Infection [Unknown]
